FAERS Safety Report 17417911 (Version 3)
Quarter: 2020Q2

REPORT INFORMATION
  Report Type: Spontaneous
  Country: US (occurrence: US)
  Receive Date: 20200214
  Receipt Date: 20200402
  Transmission Date: 20200713
  Serious: Yes (Other)
  Sender: FDA-Public Use
  Company Number: US-GLAXOSMITHKLINE-US2020020886

PATIENT
  Age: 58 Year
  Sex: Female

DRUGS (2)
  1. BENLYSTA [Suspect]
     Active Substance: BELIMUMAB
     Indication: PRODUCT USED FOR UNKNOWN INDICATION
     Dosage: 200 MG
     Route: 058
     Dates: start: 20200129
  2. BENLYSTA [Suspect]
     Active Substance: BELIMUMAB
     Dosage: UNK
     Route: 058

REACTIONS (9)
  - Diarrhoea [Unknown]
  - Somnolence [Unknown]
  - Headache [Unknown]
  - Asthenia [Unknown]
  - Nausea [Unknown]
  - Dehydration [Unknown]
  - Chest discomfort [Unknown]
  - Pulmonary congestion [Unknown]
  - Arthralgia [Unknown]

NARRATIVE: CASE EVENT DATE: 20200201
